FAERS Safety Report 20015783 (Version 1)
Quarter: 2021Q4

REPORT INFORMATION
  Report Type: Spontaneous
  Country: US (occurrence: None)
  Receive Date: 20211101
  Receipt Date: 20211101
  Transmission Date: 20220303
  Serious: No
  Sender: FDA-Public Use
  Company Number: None

PATIENT
  Sex: Female

DRUGS (1)
  1. TREMFYA [Suspect]
     Active Substance: GUSELKUMAB
     Indication: Psoriatic arthropathy
     Dosage: OTHER QUANTITY : 1 PEN;?OTHER FREQUENCY : EVERY 8 WEEKS;?
     Route: 030
     Dates: start: 20210803

REACTIONS (3)
  - Injection related reaction [None]
  - Back pain [None]
  - Arthralgia [None]
